FAERS Safety Report 5486660-5 (Version None)
Quarter: 2007Q3

REPORT INFORMATION
  Report Type: 
  Country: None (occurrence: None)
  Receive Date: 20070925
  Receipt Date: 20070726
  Transmission Date: 20080115
  Serious: No
  Sender: FDA-Public Use
  Company Number: 2007US001846

PATIENT
  Age: 83 Year
  Sex: Female

DRUGS (4)
  1. VESICARE [Suspect]
     Indication: STRESS URINARY INCONTINENCE
     Dosage: 10 MG, ORAL
     Route: 048
  2. THYROID THERAPY [Concomitant]
  3. QUININE [Concomitant]
  4. VITAMINS [Concomitant]

REACTIONS (1)
  - URINARY TRACT INFECTION [None]
